FAERS Safety Report 5003830-0 (Version None)
Quarter: 2006Q2

REPORT INFORMATION
  Report Type: 
  Country: None (occurrence: None)
  Receive Date: 20060515
  Receipt Date: 20060502
  Transmission Date: 20061013
  Serious: Yes (Life-Threatening, Hospitalization)
  Sender: FDA-Public Use
  Company Number: 2005094755

PATIENT
  Age: 34 Year
  Sex: Female
  Weight: 52 kg

DRUGS (10)
  1. DOXORUBICIN HCL [Suspect]
     Indication: SYNOVIAL SARCOMA
     Dosage: 20 MG/M2 (1 IN 1 D), INTRAVENOUS
     Route: 042
     Dates: start: 20050411, end: 20050525
  2. IFOSFAMIDE [Suspect]
     Indication: SYNOVIAL SARCOMA
     Dosage: 2.5 MG/M2 (CYCLICAL), INTRAVENOUS
     Route: 042
     Dates: start: 20050411, end: 20050525
  3. MESNA [Suspect]
     Indication: SYNOVIAL SARCOMA
     Dosage: 25 MG/M2 (CYCLICAL), INTRAVENOUS
     Route: 042
     Dates: start: 20050411, end: 20050525
  4. SOLU-MEDROL [Suspect]
     Indication: ILL-DEFINED DISORDER
     Dosage: 60 MG (CYCLICAL), INTRAVENOUS
     Route: 042
     Dates: start: 20050502, end: 20050525
  5. DACARBAZINE [Suspect]
     Indication: SYNOVIAL SARCOMA
     Dosage: 300 MG/M2 (CYCLICAL), INTRAVENOUS
     Route: 042
     Dates: start: 20050411, end: 20050525
  6. ONDANSETRON [Suspect]
     Indication: ILL-DEFINED DISORDER
     Dosage: 16 MG (8 MG, 2 IN 1 D, INTRAVENOUS
     Route: 042
     Dates: start: 20050411, end: 20050525
  7. CHLORPROMAZINE [Concomitant]
  8. DARBEPOETIN ALFA (DARBEPOETIN ALFA) [Concomitant]
  9. NEULASTA [Concomitant]
  10. APREPITANT (APREPITANT) [Concomitant]

REACTIONS (28)
  - ABDOMINAL PAIN UPPER [None]
  - ANAEMIA [None]
  - ANURIA [None]
  - ASCITES [None]
  - BLOOD FIBRINOGEN DECREASED [None]
  - BRAIN OEDEMA [None]
  - BUDD-CHIARI SYNDROME [None]
  - COAGULATION FACTOR V LEVEL DECREASED [None]
  - CYTOLYTIC HEPATITIS [None]
  - DIARRHOEA HAEMORRHAGIC [None]
  - HEPATIC ENCEPHALOPATHY [None]
  - HEPATIC FAILURE [None]
  - HEPATORENAL SYNDROME [None]
  - LIVER TRANSPLANT [None]
  - LOSS OF CONSCIOUSNESS [None]
  - MALAISE [None]
  - METABOLIC ACIDOSIS [None]
  - NEUTROPENIA [None]
  - PLEURAL EFFUSION [None]
  - PORTAL VEIN THROMBOSIS [None]
  - PROTEIN TOTAL DECREASED [None]
  - SHOCK [None]
  - SINUS TACHYCARDIA [None]
  - THERAPY NON-RESPONDER [None]
  - THROMBIN-ANTITHROMBIN III COMPLEX DECREASED [None]
  - THROMBOCYTOPENIA [None]
  - VOMITING [None]
  - WHITE BLOOD CELL COUNT INCREASED [None]
